FAERS Safety Report 10136878 (Version 1)
Quarter: 2014Q2

REPORT INFORMATION
  Report Type: Spontaneous
  Country: CA (occurrence: CA)
  Receive Date: 20140429
  Receipt Date: 20140429
  Transmission Date: 20141212
  Serious: Yes (Hospitalization, Disabling, Other)
  Sender: FDA-Public Use
  Company Number: CA-ASTELLAS-2014US004097

PATIENT
  Age: 61 Year
  Sex: Male

DRUGS (2)
  1. ADVAGRAF [Suspect]
     Indication: LIVER TRANSPLANT
     Route: 048
     Dates: start: 201305
  2. ADVAGRAF [Suspect]
     Route: 048
     Dates: start: 201310

REACTIONS (5)
  - Toxicity to various agents [Unknown]
  - Femur fracture [Not Recovered/Not Resolved]
  - Impaired healing [Not Recovered/Not Resolved]
  - Loss of consciousness [Unknown]
  - Liver transplant rejection [Unknown]
